FAERS Safety Report 6938567-1 (Version None)
Quarter: 2010Q3

REPORT INFORMATION
  Report Type: 
  Country: None (occurrence: None)
  Receive Date: 20100824
  Receipt Date: 20100813
  Transmission Date: 20110219
  Serious: Yes (Death, Other)
  Sender: FDA-Public Use
  Company Number: US-BAXTER-2010BH020055

PATIENT
  Age: 53 Year
  Sex: Female

DRUGS (1)
  1. DIANEAL [Suspect]
     Indication: PERITONEAL DIALYSIS
     Route: 033
     Dates: end: 20100710

REACTIONS (4)
  - BLOOD GLUCOSE INCREASED [None]
  - DIABETIC COMA [None]
  - INTRACRANIAL PRESSURE INCREASED [None]
  - UNRESPONSIVE TO STIMULI [None]
